FAERS Safety Report 15849265 (Version 2)
Quarter: 2019Q3

REPORT INFORMATION
  Report Type: Report from Study
  Country: US (occurrence: US)
  Receive Date: 20190121
  Receipt Date: 20190712
  Transmission Date: 20191004
  Serious: Yes (Hospitalization)
  Sender: FDA-Public Use
  Company Number: US-SA-2019SA012158

PATIENT
  Age: 67 Year
  Sex: Female

DRUGS (1)
  1. TERIFLUNOMIDE. [Suspect]
     Active Substance: TERIFLUNOMIDE
     Indication: MULTIPLE SCLEROSIS
     Dosage: 14 MG, QD
     Route: 048
     Dates: start: 20170728

REACTIONS (5)
  - Impaired healing [Not Recovered/Not Resolved]
  - Hypertension [Unknown]
  - Mental status changes [Unknown]
  - Cystitis [Unknown]
  - Wound [Not Recovered/Not Resolved]
